FAERS Safety Report 14174088 (Version 1)
Quarter: 2017Q4

REPORT INFORMATION
  Report Type: Spontaneous
  Country: PT (occurrence: PT)
  Receive Date: 20171109
  Receipt Date: 20171109
  Transmission Date: 20180321
  Serious: Yes (Death, Hospitalization)
  Sender: FDA-Public Use
  Company Number: PT-TEVA-822125ISR

PATIENT
  Age: 83 Year
  Sex: Female

DRUGS (12)
  1. COTRIMOXAZOL RATIOPHARM [Suspect]
     Active Substance: SULFAMETHOXAZOLE\TRIMETHOPRIM
     Indication: URINARY TRACT INFECTION
     Dosage: 1920 MILLIGRAM DAILY;
     Route: 048
     Dates: start: 20170922, end: 20170926
  2. MEMANTINA [Concomitant]
     Active Substance: MEMANTINE HYDROCHLORIDE
     Dosage: 10 MILLIGRAM DAILY;
     Route: 048
  3. LORAZEPAM. [Concomitant]
     Active Substance: LORAZEPAM
     Dosage: 2.5 MILLIGRAM DAILY;
     Route: 048
  4. AMLODIPINA [Concomitant]
     Active Substance: AMLODIPINE BESYLATE
     Dosage: 10 MILLIGRAM DAILY;
     Route: 048
  5. ACIDO FOLICO [Concomitant]
     Active Substance: CYANOCOBALAMIN\FOLIC ACID\PYRIDOXINE HYDROCHLORIDE
     Dosage: 5 GRAM DAILY;
     Route: 048
  6. BISOPROLOL [Concomitant]
     Active Substance: BISOPROLOL
     Dosage: 5 MILLIGRAM DAILY;
     Route: 048
  7. QUETIAPINA [Concomitant]
     Active Substance: QUETIAPINE
     Dosage: PROLONGED RELEASE
     Route: 048
  8. LEVOTIROXINA (LEVOTHYROXINE SODIUM) [Concomitant]
     Active Substance: LEVOTHYROXINE SODIUM
     Dosage: .075 MILLIGRAM DAILY;
     Route: 048
  9. RISPERIDONA [Concomitant]
     Active Substance: RISPERIDONE
     Dosage: .25 MILLIGRAM DAILY;
     Route: 048
  10. STUGERON [Concomitant]
     Active Substance: CINNARIZINE
     Dosage: 25 MILLIGRAM DAILY;
     Route: 048
  11. LISINOPRIL + HIDROCLOROTIAZIDA [Concomitant]
     Active Substance: HYDROCHLOROTHIAZIDE\LISINOPRIL
     Dosage: 32.5 MILLIGRAM DAILY; 20+12,5 MG
  12. CLOPIDOGREL [Concomitant]
     Active Substance: CLOPIDOGREL BISULFATE
     Dosage: 75 MILLIGRAM DAILY;
     Route: 048

REACTIONS (3)
  - Product quality issue [Unknown]
  - Therapy non-responder [Fatal]
  - Drug ineffective [Fatal]

NARRATIVE: CASE EVENT DATE: 20170922
